FAERS Safety Report 20222611 (Version 1)
Quarter: 2021Q4

REPORT INFORMATION
  Report Type: Report from Study
  Country: US (occurrence: US)
  Receive Date: 20211223
  Receipt Date: 20211223
  Transmission Date: 20220303
  Serious: Yes (Other)
  Sender: FDA-Public Use
  Company Number: US-JNJFOC-20211241207

PATIENT
  Age: 65 Year
  Sex: Male

DRUGS (2)
  1. SPRAVATO [Suspect]
     Active Substance: ESKETAMINE
     Indication: Depression
     Dosage: 56 MG, 1 TOTAL DOSES
     Dates: start: 20210225, end: 20210225
  2. SPRAVATO [Suspect]
     Active Substance: ESKETAMINE
     Dosage: 84 MG, 72 TOTAL DOSES WITH 2 MORE DOSES OF 84 MG ON 16/DEC/2021 AND 20/DEC/2021
     Dates: start: 20210304, end: 20211213

REACTIONS (2)
  - Feeling abnormal [Unknown]
  - Dissociation [Unknown]

NARRATIVE: CASE EVENT DATE: 20210101
